FAERS Safety Report 6185832-4 (Version None)
Quarter: 2009Q2

REPORT INFORMATION
  Report Type: 
  Country: None (occurrence: None)
  Receive Date: 20090507
  Receipt Date: 20090504
  Transmission Date: 20091009
  Serious: Yes (Death, Hospitalization, Other)
  Sender: FDA-Public Use
  Company Number: 1000005616

PATIENT
  Age: 84 Year
  Sex: Female

DRUGS (12)
  1. NAMENDA [Suspect]
     Indication: DEMENTIA ALZHEIMER'S TYPE
     Dosage: 5 MG (5 MG, 1 IN 1 D), ORAL; 10 MG ( 5 MG, 2 IN 1 D), ORAL; 2 IN 1 D; 20 MG (10 MG, 2 IN 1 D), ORAL
     Route: 048
     Dates: start: 20030101, end: 20030101
  2. NAMENDA [Suspect]
     Indication: DEMENTIA ALZHEIMER'S TYPE
     Dosage: 5 MG (5 MG, 1 IN 1 D), ORAL; 10 MG ( 5 MG, 2 IN 1 D), ORAL; 2 IN 1 D; 20 MG (10 MG, 2 IN 1 D), ORAL
     Route: 048
     Dates: start: 20030101, end: 20030101
  3. NAMENDA [Suspect]
     Indication: DEMENTIA ALZHEIMER'S TYPE
     Dosage: 5 MG (5 MG, 1 IN 1 D), ORAL; 10 MG ( 5 MG, 2 IN 1 D), ORAL; 2 IN 1 D; 20 MG (10 MG, 2 IN 1 D), ORAL
     Route: 048
     Dates: start: 20030101, end: 20030101
  4. NAMENDA [Suspect]
     Indication: DEMENTIA ALZHEIMER'S TYPE
     Dosage: 5 MG (5 MG, 1 IN 1 D), ORAL; 10 MG ( 5 MG, 2 IN 1 D), ORAL; 2 IN 1 D; 20 MG (10 MG, 2 IN 1 D), ORAL
     Route: 048
     Dates: start: 20030101, end: 20090323
  5. AMANTADINE HCL [Suspect]
     Dosage: 20 MG (10 MG, 2 IN 1 D)
     Dates: start: 20090125, end: 20090310
  6. LISINOPRIL [Concomitant]
  7. ADVAIR HFA [Concomitant]
  8. OMEPRAZOLE [Concomitant]
  9. PAROXETINE HCL [Concomitant]
  10. METOPROLOL [Concomitant]
  11. ISOSORBIDE [Concomitant]
  12. FOLIC ACID [Concomitant]

REACTIONS (15)
  - ANAEMIA [None]
  - CARDIAC ARREST [None]
  - CLOSTRIDIAL INFECTION [None]
  - CONDITION AGGRAVATED [None]
  - DECUBITUS ULCER [None]
  - DRUG PRESCRIBING ERROR [None]
  - DYSPHAGIA [None]
  - GENERAL PHYSICAL HEALTH DETERIORATION [None]
  - MOVEMENT DISORDER [None]
  - MYOCARDIAL INFARCTION [None]
  - PNEUMONIA [None]
  - SALIVARY HYPERSECRETION [None]
  - SPEECH DISORDER [None]
  - URINARY TRACT INFECTION [None]
  - WRONG DRUG ADMINISTERED [None]
